FAERS Safety Report 11837647 (Version 1)
Quarter: 2015Q4

REPORT INFORMATION
  Report Type: Spontaneous
  Country: US (occurrence: US)
  Receive Date: 20151215
  Receipt Date: 20151215
  Transmission Date: 20160305
  Serious: Yes (Death)
  Sender: FDA-Public Use
  Company Number: US-JNJFOC-20151205651

PATIENT
  Sex: Female

DRUGS (1)
  1. HALDOL DECANOATE [Suspect]
     Active Substance: HALOPERIDOL DECANOATE
     Indication: PRODUCT USED FOR UNKNOWN INDICATION
     Route: 030

REACTIONS (5)
  - Spinal fracture [Fatal]
  - Urinary tract infection [Fatal]
  - Dysphagia [Fatal]
  - Dehydration [Fatal]
  - Multi-organ failure [Fatal]
